FAERS Safety Report 15847514 (Version 3)
Quarter: 2019Q1

REPORT INFORMATION
  Report Type: Spontaneous
  Country: ES (occurrence: ES)
  Receive Date: 20190121
  Receipt Date: 20190225
  Transmission Date: 20190417
  Serious: Yes (Life-Threatening, Hospitalization, Disabling, Other)
  Sender: FDA-Public Use
  Company Number: ES-AUROBINDO-AUR-APL-2019-001725

PATIENT

DRUGS (2)
  1. DULOXETINE. [Suspect]
     Active Substance: DULOXETINE
     Indication: DEPRESSION
     Dosage: 30 MILLIGRAM
     Route: 065
  2. DULOXETINE. [Suspect]
     Active Substance: DULOXETINE
     Dosage: 80 DOSAGE FORM
     Route: 065
     Dates: start: 2018, end: 2018

REACTIONS (12)
  - Intentional overdose [Unknown]
  - Suicide attempt [Unknown]
  - Personality disorder [Recovered/Resolved]
  - Suicidal ideation [Unknown]
  - Opsoclonus myoclonus [Recovered/Resolved]
  - Hallucination, visual [Recovered/Resolved]
  - Eye movement disorder [Recovered/Resolved]
  - Vision blurred [Recovered/Resolved]
  - Toxicity to various agents [Recovered/Resolved]
  - Overdose [Recovered/Resolved]
  - Gait disturbance [Recovered/Resolved]
  - Tremor [Recovered/Resolved]

NARRATIVE: CASE EVENT DATE: 2018
